FAERS Safety Report 10044242 (Version 1)
Quarter: 2014Q1

REPORT INFORMATION
  Report Type: Spontaneous
  Country: US (occurrence: None)
  Receive Date: 20140327
  Receipt Date: 20140327
  Transmission Date: 20141002
  Serious: Yes (Hospitalization)
  Sender: FDA-Public Use
  Company Number: None

PATIENT
  Age: 51 Year
  Sex: Male
  Weight: 94.1 kg

DRUGS (1)
  1. ROSUVASTATIN [Suspect]
     Indication: HYPERLIPIDAEMIA
     Route: 048
     Dates: start: 20130711, end: 20140109

REACTIONS (7)
  - Leukocytosis [None]
  - Liver function test abnormal [None]
  - Hypoalbuminaemia [None]
  - Hypersensitivity [None]
  - Hyperglycaemia [None]
  - Dehydration [None]
  - Rhabdomyolysis [None]
